FAERS Safety Report 4957020-8 (Version None)
Quarter: 2006Q1

REPORT INFORMATION
  Report Type: 
  Country: None (occurrence: None)
  Receive Date: 20060329
  Receipt Date: 20060322
  Transmission Date: 20060701
  Serious: Yes (Death)
  Sender: FDA-Public Use
  Company Number: US-JNJFOC-20060100568

PATIENT
  Sex: Male

DRUGS (2)
  1. DURAGESIC-100 [Suspect]
     Indication: DRUG USE FOR UNKNOWN INDICATION
     Route: 062
  2. PANCREASE [Suspect]
     Indication: DRUG USE FOR UNKNOWN INDICATION
     Dosage: 1-3 TABLETS, ORAL
     Route: 048

REACTIONS (1)
  - PANCREATIC CARCINOMA METASTATIC [None]
